FAERS Safety Report 9596449 (Version 1)
Quarter: 2013Q4

REPORT INFORMATION
  Report Type: Report from Study
  Country: CN (occurrence: CN)
  Receive Date: 20131004
  Receipt Date: 20131004
  Transmission Date: 20140711
  Serious: Yes (Death)
  Sender: FDA-Public Use
  Company Number: CN-SA-2013SA098748

PATIENT
  Sex: 0

DRUGS (10)
  1. FLUDARABINE PHOSPHATE [Suspect]
     Indication: LEUKAEMIA
     Dosage: ON DAYS -6 TO -2
     Route: 065
  2. ANTI-THYMOCYTE GLOBULIN (RABBIT) [Suspect]
     Indication: LEUKAEMIA
     Dosage: ADMINISTERED ON DAYS -2 TO -1 FOR A TOTAL OF 500-600 MG
     Route: 065
  3. BUSULFAN [Suspect]
     Indication: LEUKAEMIA
     Dosage: A TOTAL OF 10 DOSES
     Route: 065
  4. CICLOSPORIN [Concomitant]
     Indication: PROPHYLAXIS AGAINST GRAFT VERSUS HOST DISEASE
     Dosage: FROM DAY -1 TO DAY 28
     Route: 042
  5. CICLOSPORIN [Concomitant]
     Indication: PROPHYLAXIS AGAINST GRAFT VERSUS HOST DISEASE
     Route: 048
  6. METHOTREXATE [Concomitant]
     Indication: PROPHYLAXIS AGAINST GRAFT VERSUS HOST DISEASE
     Dosage: ON DAY 1
     Route: 042
  7. METHOTREXATE [Concomitant]
     Indication: PROPHYLAXIS AGAINST GRAFT VERSUS HOST DISEASE
     Dosage: ON DAYS 3, 6 AND 11
     Route: 042
  8. SULFAMETHOXAZOLE/TRIMETHOPRIM [Concomitant]
     Indication: PROPHYLAXIS
     Route: 048
  9. GANCICLOVIR [Concomitant]
     Indication: ANTIVIRAL PROPHYLAXIS
     Route: 042
  10. PROSTAGLANDIN E1 [Concomitant]
     Indication: PROPHYLAXIS
     Route: 042

REACTIONS (1)
  - Toxicity to various agents [Fatal]
